FAERS Safety Report 7745723-1 (Version None)
Quarter: 2011Q3

REPORT INFORMATION
  Report Type: 
  Country: None (occurrence: None)
  Receive Date: 20110830
  Receipt Date: 20110819
  Transmission Date: 20111222
  Serious: Yes (Other)
  Sender: FDA-Public Use
  Company Number: 2010SP010224

PATIENT
  Age: 29 Year
  Sex: Female
  Weight: 78 kg

DRUGS (2)
  1. NUVARING [Suspect]
     Indication: CONTRACEPTION
     Dosage: QM;VAG
     Route: 067
     Dates: start: 20091015
  2. NEURACTIN [Concomitant]

REACTIONS (6)
  - DISEASE RECURRENCE [None]
  - MENSTRUATION DELAYED [None]
  - COMPLEX PARTIAL SEIZURES [None]
  - EPILEPSY [None]
  - WITHDRAWAL BLEED [None]
  - GRAND MAL CONVULSION [None]
